FAERS Safety Report 11535040 (Version 1)
Quarter: 2015Q3

REPORT INFORMATION
  Report Type: Spontaneous
  Country: US (occurrence: None)
  Receive Date: 20150921
  Receipt Date: 20150921
  Transmission Date: 20151125
  Serious: Yes (Hospitalization)
  Sender: FDA-Public Use
  Company Number: None

PATIENT
  Age: 67 Year

DRUGS (14)
  1. ESCITALPRAM [Concomitant]
  2. MEOCLOPRAM [Concomitant]
  3. PROMETHEGAN SUF [Concomitant]
  4. DULOXETINE. [Concomitant]
     Active Substance: DULOXETINE
  5. METRONIDAZOL [Concomitant]
     Active Substance: METRONIDAZOLE
  6. SELZENTRY [Concomitant]
     Active Substance: MARAVIROC
  7. HARVONI [Suspect]
     Active Substance: LEDIPASVIR\SOFOSBUVIR
     Indication: HEPATITIS C
     Dosage: 1 TABLET  QD  PO
     Route: 048
  8. ATORVASTATIN [Concomitant]
     Active Substance: ATORVASTATIN
  9. ISENTRESS [Concomitant]
     Active Substance: RALTEGRAVIR POTASSIUM
  10. LISINOPRIL. [Concomitant]
     Active Substance: LISINOPRIL
  11. CIPROFLOXACIN. [Concomitant]
     Active Substance: CIPROFLOXACIN
  12. NORVIR [Concomitant]
     Active Substance: RITONAVIR
  13. LATANOPROST. [Concomitant]
     Active Substance: LATANOPROST
  14. PREZISTA [Concomitant]
     Active Substance: DARUNAVIR ETHANOLATE

REACTIONS (3)
  - Haematoma [None]
  - Head injury [None]
  - Fall [None]

NARRATIVE: CASE EVENT DATE: 20150820
